FAERS Safety Report 4470687-6 (Version None)
Quarter: 2004Q4

REPORT INFORMATION
  Report Type: 
  Country: None (occurrence: None)
  Receive Date: 20041006
  Receipt Date: 20041006
  Transmission Date: 20050328
  Serious: Yes (Life-Threatening)
  Sender: FDA-Public Use
  Company Number: None

PATIENT
  Age: 58 Year
  Sex: Male
  Weight: 86.1834 kg

DRUGS (2)
  1. VIOXX [Suspect]
     Indication: CEREBROVASCULAR ACCIDENT
     Dosage: ONE A DAY ORAL
     Route: 048
     Dates: start: 20040318, end: 20041231
  2. PLAVIX [Concomitant]

REACTIONS (1)
  - CEREBROVASCULAR ACCIDENT [None]
